FAERS Safety Report 4504534-0 (Version None)
Quarter: 2004Q4

REPORT INFORMATION
  Report Type: 
  Country: None (occurrence: None)
  Receive Date: 20041116
  Receipt Date: 20041109
  Transmission Date: 20050328
  Serious: Yes (Other)
  Sender: FDA-Public Use
  Company Number: 200415240BCC

PATIENT
  Age: 68 Year
  Sex: Male
  Weight: 63.5036 kg

DRUGS (1)
  1. ALKA-SELTZER PLUS EFFERVESCENT COLD [Suspect]
     Indication: NASOPHARYNGITIS
     Dosage: 4/10/500 MG, ONCE, ORAL
     Route: 048
     Dates: start: 20041024

REACTIONS (1)
  - BLOOD URINE PRESENT [None]
